FAERS Safety Report 6922901-2 (Version None)
Quarter: 2010Q3

REPORT INFORMATION
  Report Type: 
  Country: None (occurrence: None)
  Receive Date: 20100813
  Receipt Date: 20100804
  Transmission Date: 20110219
  Serious: Yes (Hospitalization)
  Sender: FDA-Public Use
  Company Number: NO-ASTRAZENECA-2010SE23588

PATIENT
  Age: 27636 Day
  Sex: Female

DRUGS (10)
  1. PROPOFOL [Suspect]
     Indication: ANAESTHESIA
     Route: 042
  2. ATROPIN [Suspect]
     Indication: ANAESTHESIA
  3. CURACIT [Suspect]
     Indication: ANAESTHESIA
  4. SOBRIL [Concomitant]
  5. EDRONAX [Concomitant]
  6. NORTRIPTYLINE HCL [Concomitant]
  7. SINEMET [Concomitant]
     Dosage: 25/100
  8. SINEMET [Concomitant]
     Dosage: 12.5/50
  9. FLUTIDE [Concomitant]
  10. APODORM [Concomitant]

REACTIONS (1)
  - PULMONARY EMBOLISM [None]
